FAERS Safety Report 7016338-8 (Version None)
Quarter: 2010Q3

REPORT INFORMATION
  Report Type: 
  Country: None (occurrence: None)
  Receive Date: 20100927
  Receipt Date: 20100915
  Transmission Date: 20110219
  Serious: Yes (Other)
  Sender: FDA-Public Use
  Company Number: DE-PFIZER INC-2010103837

PATIENT
  Age: 65 Year
  Sex: Female

DRUGS (3)
  1. LYRICA [Suspect]
     Indication: GENERALISED ANXIETY DISORDER
     Dosage: 50 MG, 2X/DAY
     Route: 048
     Dates: start: 20100618, end: 20100722
  2. LYRICA [Suspect]
     Indication: NEURALGIA
  3. AMITRIPTYLINE [Concomitant]
     Dosage: 50 MG DAILY
     Route: 048

REACTIONS (4)
  - AGITATION [None]
  - DRUG INTERACTION [None]
  - HYPERTENSIVE CRISIS [None]
  - RESTLESSNESS [None]
